FAERS Safety Report 8334055-9 (Version None)
Quarter: 2012Q1

REPORT INFORMATION
  Report Type: 
  Country: None (occurrence: None)
  Receive Date: 20120328
  Receipt Date: 20100409
  Transmission Date: 20120608
  Serious: Yes (Other)
  Sender: FDA-Public Use
  Company Number: PHHY2010US22619

PATIENT
  Age: 65 Year
  Sex: Female
  Weight: 145.1 kg

DRUGS (1)
  1. VALTURNA [Suspect]
     Indication: BLOOD PRESSURE INCREASED
     Dosage: 300/320 MG, QD, ORAL
     Route: 048
     Dates: start: 20100331, end: 20100409

REACTIONS (4)
  - THROAT TIGHTNESS [None]
  - DYSPNOEA [None]
  - OEDEMA PERIPHERAL [None]
  - OEDEMA [None]
